FAERS Safety Report 14619436 (Version 1)
Quarter: 2018Q1

REPORT INFORMATION
  Report Type: Spontaneous
  Country: GR (occurrence: GR)
  Receive Date: 20180309
  Receipt Date: 20180309
  Transmission Date: 20180509
  Serious: Yes (Other)
  Sender: FDA-Public Use
  Company Number: GR-PFIZER INC-2018090951

PATIENT
  Age: 80 Year
  Sex: Male

DRUGS (1)
  1. LIPITOR [Suspect]
     Active Substance: ATORVASTATIN CALCIUM
     Dosage: 80 MG, UNK

REACTIONS (9)
  - Visual acuity reduced [Unknown]
  - Back pain [Recovering/Resolving]
  - Hypoacusis [Unknown]
  - Alopecia [Unknown]
  - Malaise [Unknown]
  - Confusional state [Unknown]
  - Paralysis [Recovering/Resolving]
  - Pain in extremity [Recovering/Resolving]
  - Arthritis [Unknown]
